FAERS Safety Report 7591492-8 (Version None)
Quarter: 2011Q3

REPORT INFORMATION
  Report Type: 
  Country: None (occurrence: None)
  Receive Date: 20110701
  Receipt Date: 20110701
  Transmission Date: 20111222
  Serious: Yes (Other)
  Sender: FDA-Public Use
  Company Number: None

PATIENT
  Age: 83 Year
  Sex: Male
  Weight: 83.9154 kg

DRUGS (2)
  1. LEVAQUIN [Suspect]
     Indication: HYPOXIA
     Dosage: PO
     Route: 048
     Dates: start: 20110621, end: 20110624
  2. LEVAQUIN [Suspect]
     Indication: PNEUMONIA
     Dosage: PO
     Route: 048
     Dates: start: 20110621, end: 20110624

REACTIONS (1)
  - TENDON RUPTURE [None]
